FAERS Safety Report 13578364 (Version 1)
Quarter: 2017Q2

REPORT INFORMATION
  Report Type: Spontaneous
  Country: US (occurrence: US)
  Receive Date: 20170524
  Receipt Date: 20170524
  Transmission Date: 20170830
  Serious: No
  Sender: FDA-Public Use
  Company Number: PHEH2017US015610

PATIENT
  Age: 48 Year
  Sex: Female

DRUGS (1)
  1. MEKINIST [Suspect]
     Active Substance: TRAMETINIB DIMETHYL SULFOXIDE
     Indication: MALIGNANT NEOPLASM OF EYE
     Dosage: 1 MG, QD
     Route: 048
     Dates: start: 20170427, end: 20170519

REACTIONS (1)
  - Hypersensitivity [Unknown]
